FAERS Safety Report 19023056 (Version 2)
Quarter: 2021Q2

REPORT INFORMATION
  Report Type: Spontaneous
  Country: US (occurrence: US)
  Receive Date: 20210317
  Receipt Date: 20210401
  Transmission Date: 20210717
  Serious: Yes (Other)
  Sender: FDA-Public Use
  Company Number: US-BAUSCH-BL-2021-005021

PATIENT
  Age: 67 Year
  Sex: Female
  Weight: 46.76 kg

DRUGS (3)
  1. LACRISERT [Suspect]
     Active Substance: HYDROXYPROPYL CELLULOSE
     Indication: DRY EYE
     Dosage: START DATE: ABOUT TWENTY?FIVE YEARS AGO FROM THE DATE OF THE INITIAL REPORT
     Route: 047
     Dates: start: 1996, end: 202007
  2. RESTASIS [Concomitant]
     Active Substance: CYCLOSPORINE
     Indication: PRODUCT USED FOR UNKNOWN INDICATION
     Route: 047
  3. LACRISERT [Suspect]
     Active Substance: HYDROXYPROPYL CELLULOSE
     Indication: KERATOCONUS
     Route: 047
     Dates: start: 20200714

REACTIONS (4)
  - Eye pruritus [Unknown]
  - Dry eye [Unknown]
  - Pancreatic failure [Unknown]
  - Therapy interrupted [Unknown]

NARRATIVE: CASE EVENT DATE: 202007
